FAERS Safety Report 10083393 (Version 1)
Quarter: 2014Q2

REPORT INFORMATION
  Report Type: Spontaneous
  Country: US (occurrence: None)
  Receive Date: 20140416
  Receipt Date: 20140416
  Transmission Date: 20141212
  Serious: Yes (Disabling)
  Sender: FDA-Public Use
  Company Number: None

PATIENT
  Sex: Female

DRUGS (1)
  1. SULFAMETH/TRIMETHOPRIM 800 AMNEAL [Suspect]
     Indication: DERMATITIS CONTACT
     Route: 048
     Dates: start: 20140406, end: 20140409

REACTIONS (1)
  - Rash [None]
